FAERS Safety Report 26151100 (Version 1)
Quarter: 2025Q4

REPORT INFORMATION
  Report Type: Spontaneous
  Country: US (occurrence: US)
  Receive Date: 20251212
  Receipt Date: 20251212
  Transmission Date: 20260118
  Serious: No
  Sender: FRESENIUS KABI
  Company Number: US-FreseniusKabi-FK202516561

PATIENT
  Sex: Female

DRUGS (1)
  1. TYENNE [Suspect]
     Active Substance: TOCILIZUMAB-AAZG
     Indication: Product used for unknown indication
     Dosage: FORM OF ADMIN: INFUSION
     Route: 042

REACTIONS (3)
  - Nausea [Unknown]
  - Tremor [Unknown]
  - Hyperhidrosis [Unknown]
